FAERS Safety Report 8366719-5 (Version None)
Quarter: 2012Q2

REPORT INFORMATION
  Report Type: 
  Country: None (occurrence: None)
  Receive Date: 20120517
  Receipt Date: 20120511
  Transmission Date: 20120825
  Serious: Yes (Hospitalization, Other)
  Sender: FDA-Public Use
  Company Number: FR-PFIZER INC-2012105754

PATIENT
  Age: 82 Year
  Sex: Male

DRUGS (1)
  1. AXITINIB [Suspect]
     Dosage: UNK
     Dates: start: 20120413

REACTIONS (6)
  - HYPOTENSION [None]
  - MALAISE [None]
  - ISCHAEMIC STROKE [None]
  - POLYCYTHAEMIA [None]
  - HYPERTENSION [None]
  - HEMIPARESIS [None]
